FAERS Safety Report 7729050-4 (Version None)
Quarter: 2011Q3

REPORT INFORMATION
  Report Type: 
  Country: None (occurrence: None)
  Receive Date: 20110906
  Receipt Date: 20110826
  Transmission Date: 20111222
  Serious: Yes (Hospitalization, Other)
  Sender: FDA-Public Use
  Company Number: US-BAYER-2011-011229

PATIENT
  Age: 36 Year
  Sex: Female
  Weight: 93 kg

DRUGS (11)
  1. HYDROCODONE BITARTRATE [Concomitant]
  2. NORCO [Concomitant]
  3. TOPAMAX [Concomitant]
     Dosage: UNK
     Dates: start: 20010101
  4. YAZ [Suspect]
     Indication: CONTRACEPTION
     Dosage: UNK
     Dates: start: 20070101, end: 20090601
  5. LIPITOR [Concomitant]
     Dosage: UNK
     Dates: start: 20050101
  6. YAZ [Suspect]
     Indication: ACNE
  7. YASMIN [Suspect]
     Indication: CONTRACEPTION
     Dosage: UNK
     Dates: start: 20070101, end: 20090601
  8. YASMIN [Suspect]
     Indication: ACNE
  9. AUGMENTIN '125' [Concomitant]
  10. STRESSTABS WITH ZINC [Concomitant]
  11. NEXIUM [Concomitant]

REACTIONS (6)
  - GALLBLADDER DISORDER [None]
  - EMOTIONAL DISTRESS [None]
  - BILIARY DYSKINESIA [None]
  - ANXIETY [None]
  - PAIN [None]
  - CHOLECYSTITIS CHRONIC [None]
